FAERS Safety Report 14999546 (Version 1)
Quarter: 2018Q2

REPORT INFORMATION
  Report Type: Spontaneous
  Country: JP (occurrence: JP)
  Receive Date: 20180612
  Receipt Date: 20180612
  Transmission Date: 20180711
  Serious: Yes (Hospitalization)
  Sender: FDA-Public Use
  Company Number: JP-PAN-2018-000304

PATIENT
  Age: 64 Year
  Sex: Female

DRUGS (2)
  1. PREDNISOLONE. [Concomitant]
     Active Substance: PREDNISOLONE
     Route: 048
  2. TACROLIMUS. [Suspect]
     Active Substance: TACROLIMUS

REACTIONS (1)
  - Alveolar proteinosis [Recovering/Resolving]
